FAERS Safety Report 20738940 (Version 1)
Quarter: 2022Q2

REPORT INFORMATION
  Report Type: Spontaneous
  Country: BR (occurrence: BR)
  Receive Date: 20220422
  Receipt Date: 20220422
  Transmission Date: 20220721
  Serious: Yes (Death, Other)
  Sender: FDA-Public Use
  Company Number: BR-AMGEN-BRASP2022067967

PATIENT
  Age: 2 Month
  Sex: Male

DRUGS (4)
  1. FILGRASTIM [Suspect]
     Active Substance: FILGRASTIM
     Indication: Prophylaxis
     Route: 065
  2. IDARUBICIN [Concomitant]
     Active Substance: IDARUBICIN
  3. FLUDARABINE PHOSPHATE [Concomitant]
     Active Substance: FLUDARABINE PHOSPHATE
  4. CYTARABINE [Concomitant]
     Active Substance: CYTARABINE

REACTIONS (2)
  - Acute lymphocytic leukaemia recurrent [Fatal]
  - Therapy non-responder [Unknown]
